FAERS Safety Report 25583265 (Version 2)
Quarter: 2025Q3

REPORT INFORMATION
  Report Type: Spontaneous
  Country: US (occurrence: US)
  Receive Date: 20250721
  Receipt Date: 20250722
  Transmission Date: 20251021
  Serious: Yes (Other)
  Sender: ALEXION PHARMACEUTICALS
  Company Number: US-ASTRAZENECA-202507GLO012429US

PATIENT
  Age: 62 Year
  Sex: Male
  Weight: 134.2 kg

DRUGS (7)
  1. NEXIUM [Suspect]
     Active Substance: ESOMEPRAZOLE MAGNESIUM
  2. BENICAR [Concomitant]
     Active Substance: OLMESARTAN MEDOXOMIL
  3. EVOLOCUMAB [Concomitant]
     Active Substance: EVOLOCUMAB
  4. INDOMETHACIN [Concomitant]
     Active Substance: INDOMETHACIN
  5. NITROGLYCERIN [Concomitant]
     Active Substance: NITROGLYCERIN
  6. ALLOPURINOL [Concomitant]
     Active Substance: ALLOPURINOL
  7. CYANOCOBALAMIN [Concomitant]
     Active Substance: CYANOCOBALAMIN

REACTIONS (1)
  - Gastric cancer [Unknown]
